FAERS Safety Report 10337742 (Version 2)
Quarter: 2014Q3

REPORT INFORMATION
  Report Type: Spontaneous
  Country: US (occurrence: US)
  Receive Date: 20140724
  Receipt Date: 20140724
  Transmission Date: 20150326
  Serious: No
  Sender: FDA-Public Use
  Company Number: US-UNITED THERAPEUTICS-UTC-045590

PATIENT
  Age: 44 Year
  Sex: Female
  Weight: 43.27 kg

DRUGS (3)
  1. XARELTO [Concomitant]
     Active Substance: RIVAROXABAN
  2. REMODULIN [Suspect]
     Active Substance: TREPROSTINIL
     Dosage: 0.002 UG/KG/MIN
     Route: 058
     Dates: start: 20140219
  3. REVATIO [Concomitant]
     Active Substance: SILDENAFIL CITRATE

REACTIONS (8)
  - Decreased appetite [Unknown]
  - Nausea [Unknown]
  - Infusion site swelling [Unknown]
  - Asthenia [Unknown]
  - Infusion site pain [Unknown]
  - Fatigue [Unknown]
  - Infusion site haemorrhage [Unknown]
  - Infusion site erythema [Unknown]

NARRATIVE: CASE EVENT DATE: 2014
